FAERS Safety Report 18395732 (Version 1)
Quarter: 2020Q4

REPORT INFORMATION
  Report Type: Spontaneous
  Country: US (occurrence: US)
  Receive Date: 20201018
  Receipt Date: 20201018
  Transmission Date: 20210114
  Serious: No
  Sender: FDA-Public Use
  Company Number: US-ASTRAZENECA-2020SF26564

PATIENT
  Sex: Female

DRUGS (1)
  1. BYDUREON [Suspect]
     Active Substance: EXENATIDE
     Route: 065

REACTIONS (6)
  - Erythema [Unknown]
  - Product dose omission issue [Unknown]
  - Pruritus [Unknown]
  - Skin disorder [Unknown]
  - Injection site extravasation [Unknown]
  - Skin irritation [Unknown]
